FAERS Safety Report 11343851 (Version 1)
Quarter: 2015Q3

REPORT INFORMATION
  Report Type: Spontaneous
  Country: US (occurrence: None)
  Receive Date: 20150804
  Receipt Date: 20150804
  Transmission Date: 20151125
  Serious: Yes (Hospitalization)
  Sender: FDA-Public Use
  Company Number: None

PATIENT
  Age: 72 Year
  Sex: Male
  Weight: 103 kg

DRUGS (24)
  1. DILTIAZEM (CARDIZEM CD) [Concomitant]
  2. WARFARIN 3 MG TABLETS [Suspect]
     Active Substance: WARFARIN
     Indication: CORONARY ARTERY DISEASE
     Route: 048
  3. DICLOFENAC SODIUM. [Concomitant]
     Active Substance: DICLOFENAC SODIUM
  4. ISOSORBIDE MONOITRATE (IMUR) [Concomitant]
  5. TRAMADOL (ULTRAM) [Concomitant]
  6. OXYCODONE/APAP (PERCOCET) [Concomitant]
  7. COMPOUND DILONEC [Concomitant]
  8. GABAPENTIN. [Concomitant]
     Active Substance: GABAPENTIN
  9. ROSUVASTATIN (CRESTER) [Concomitant]
  10. B COMPLEX-C-FOLIC ACID (DIALYVITE) [Concomitant]
  11. IBUPROFEN-DIPHENHYDRAMINE CIT (ADVIL PM) [Concomitant]
  12. PANTOPRAZOLE (PROTONIX) [Concomitant]
  13. INSULIN NPH (NOVOLIN N) [Concomitant]
  14. NITROGLYCERIN (NITROSTAT) [Concomitant]
  15. ZOLOFT [Concomitant]
     Active Substance: SERTRALINE HYDROCHLORIDE
  16. CLOPIDOGREL [Suspect]
     Active Substance: CLOPIDOGREL BISULFATE
     Indication: CORONARY ARTERY DISEASE
     Route: 048
  17. METOPROLOL (LOPRESSOR) [Concomitant]
  18. MIRALAX [Concomitant]
     Active Substance: POLYETHYLENE GLYCOL 3350
  19. LIDOCAINE. [Concomitant]
     Active Substance: LIDOCAINE
  20. ASPIRIN (ECOTRIN) [Concomitant]
  21. HYDROCORTISONE. [Concomitant]
     Active Substance: HYDROCORTISONE
  22. ALLOPURINOL (ZYLOPRIM) [Concomitant]
  23. IPRATROPIUM (ATROVENT) [Concomitant]
  24. SEVELAMER CARBONATE (RENVELA) [Concomitant]

REACTIONS (11)
  - Fatigue [None]
  - Cough [None]
  - Chills [None]
  - Dyspnoea [None]
  - Decreased appetite [None]
  - Haemoglobin decreased [None]
  - White blood cell count increased [None]
  - Troponin increased [None]
  - Faeces discoloured [None]
  - Malaise [None]
  - International normalised ratio increased [None]

NARRATIVE: CASE EVENT DATE: 20150730
